FAERS Safety Report 9217709 (Version 1)
Quarter: 2013Q2

REPORT INFORMATION
  Report Type: Spontaneous
  Country: US (occurrence: US)
  Receive Date: 20130408
  Receipt Date: 20130408
  Transmission Date: 20140414
  Serious: Yes (Other)
  Sender: FDA-Public Use
  Company Number: US-ASTRAZENECA-2013SE20791

PATIENT
  Age: 71 Year
  Sex: Female
  Weight: 80.7 kg

DRUGS (7)
  1. TOPROL XL [Suspect]
     Indication: HYPERTENSION
     Route: 048
  2. TOPROL XL [Suspect]
     Indication: HYPERTENSION
     Route: 048
  3. TOPROL XL [Suspect]
     Indication: HYPERTENSION
     Route: 048
  4. COZAAR [Suspect]
     Indication: HYPERTENSION
     Route: 065
  5. COZAAR [Suspect]
     Indication: HYPERTENSION
     Route: 065
  6. LYRICA [Suspect]
     Indication: HERPES ZOSTER
     Route: 048
     Dates: start: 2004
  7. LYRICA [Suspect]
     Indication: FIBROMYALGIA
     Route: 048
     Dates: start: 2004

REACTIONS (6)
  - Acoustic neuroma [Not Recovered/Not Resolved]
  - Eye disorder [Not Recovered/Not Resolved]
  - Blood pressure increased [Unknown]
  - Dizziness [Not Recovered/Not Resolved]
  - Dizziness [Not Recovered/Not Resolved]
  - Drug ineffective [Unknown]
